FAERS Safety Report 13601605 (Version 34)
Quarter: 2018Q3

REPORT INFORMATION
  Report Type: Report from Study
  Country: US (occurrence: US)
  Receive Date: 20170601
  Receipt Date: 20180816
  Transmission Date: 20181010
  Serious: Yes (Hospitalization, Other)
  Sender: FDA-Public Use
  Company Number: US-GILEAD-2017-0274714

PATIENT
  Age: 37 Year
  Sex: Female
  Weight: 110.66 kg

DRUGS (7)
  1. REMODULIN [Suspect]
     Active Substance: TREPROSTINIL
     Dosage: 7N/KG/MIN
     Route: 042
     Dates: start: 20170607
  2. REMODULIN [Suspect]
     Active Substance: TREPROSTINIL
     Indication: PULMONARY HYPERTENSION
     Dosage: 5 NG/KG/MIN
     Route: 042
  3. AMBRISENTAN [Suspect]
     Active Substance: AMBRISENTAN
     Dosage: 5 MG, QD
     Route: 065
  4. REMODULIN [Suspect]
     Active Substance: TREPROSTINIL
     Dosage: 17NG/KG/MIN
     Route: 042
  5. AMBRISENTAN [Suspect]
     Active Substance: AMBRISENTAN
     Indication: PRODUCT USED FOR UNKNOWN INDICATION
     Dosage: 10 MG, QD
     Route: 065
     Dates: start: 20170314
  6. ADCIRCA [Concomitant]
     Active Substance: TADALAFIL
  7. SILDENAFIL CITRATE. [Concomitant]
     Active Substance: SILDENAFIL CITRATE

REACTIONS (56)
  - Septic shock [Unknown]
  - Haemorrhage urinary tract [Unknown]
  - Catheter site pain [Unknown]
  - Pulmonary hypertension [Not Recovered/Not Resolved]
  - Palpitations [Not Recovered/Not Resolved]
  - Pleural effusion [Unknown]
  - Nephrolithiasis [Unknown]
  - Chest pain [Unknown]
  - Blood creatinine increased [Not Recovered/Not Resolved]
  - Renal pain [Unknown]
  - Urinary tract infection [Unknown]
  - Device related infection [Unknown]
  - Urinary tract infection [Not Recovered/Not Resolved]
  - Application site irritation [Unknown]
  - Pain in extremity [Not Recovered/Not Resolved]
  - Endotracheal intubation [Unknown]
  - Sedative therapy [Unknown]
  - Back pain [Unknown]
  - Clostridium difficile infection [Unknown]
  - Vomiting [Not Recovered/Not Resolved]
  - Chest pain [Not Recovered/Not Resolved]
  - Feeling abnormal [Not Recovered/Not Resolved]
  - Pyrexia [Not Recovered/Not Resolved]
  - Renal disorder [Unknown]
  - Cough [Unknown]
  - Catheterisation cardiac [Unknown]
  - Dyspnoea [Not Recovered/Not Resolved]
  - Haemoglobin decreased [Unknown]
  - Syncope [Unknown]
  - Swelling [Not Recovered/Not Resolved]
  - Peripheral swelling [Not Recovered/Not Resolved]
  - Fatigue [Not Recovered/Not Resolved]
  - Vomiting [Unknown]
  - Catheter site infection [Unknown]
  - Blood pressure increased [Not Recovered/Not Resolved]
  - Infusion site extravasation [Unknown]
  - Stent removal [Recovered/Resolved]
  - Blood urine present [Not Recovered/Not Resolved]
  - Sepsis [Not Recovered/Not Resolved]
  - Abdominal pain [Unknown]
  - Pericardial effusion [Unknown]
  - Injection site reaction [Unknown]
  - Diarrhoea [Not Recovered/Not Resolved]
  - Nasal congestion [Not Recovered/Not Resolved]
  - Infusion site pain [Unknown]
  - Device occlusion [Unknown]
  - Endotracheal intubation [Unknown]
  - Pneumonia [Unknown]
  - Headache [Not Recovered/Not Resolved]
  - Fungal infection [Not Recovered/Not Resolved]
  - Kidney infection [Unknown]
  - Pyrexia [Unknown]
  - Dyspnoea [Unknown]
  - Gastrointestinal disorder [Unknown]
  - Complication associated with device [Unknown]
  - Intentional dose omission [Not Recovered/Not Resolved]

NARRATIVE: CASE EVENT DATE: 201705
